FAERS Safety Report 14762085 (Version 1)
Quarter: 2018Q2

REPORT INFORMATION
  Report Type: Spontaneous
  Country: FR (occurrence: FR)
  Receive Date: 20180416
  Receipt Date: 20180416
  Transmission Date: 20180711
  Serious: Yes (Hospitalization)
  Sender: FDA-Public Use
  Company Number: FR-ROCHE-2107452

PATIENT
  Age: 11 Year
  Sex: Male
  Weight: 38 kg

DRUGS (2)
  1. CELLCEPT [Suspect]
     Active Substance: MYCOPHENOLATE MOFETIL\MYCOPHENOLATE MOFETIL HYDROCHLORIDE
     Indication: GLOMERULONEPHRITIS MEMBRANOPROLIFERATIVE
     Route: 048
     Dates: start: 2017, end: 20180311
  2. RENITEC (FRANCE) [Suspect]
     Active Substance: ENALAPRIL MALEATE
     Indication: GLOMERULONEPHRITIS CHRONIC
     Route: 048
     Dates: start: 2017, end: 20180311

REACTIONS (5)
  - Condition aggravated [Recovered/Resolved]
  - Lymphopenia [Recovered/Resolved]
  - Diarrhoea [Recovered/Resolved]
  - Agranulocytosis [Recovered/Resolved]
  - Pyrexia [Recovered/Resolved]

NARRATIVE: CASE EVENT DATE: 20180309
